FAERS Safety Report 18447845 (Version 1)
Quarter: 2020Q4

REPORT INFORMATION
  Report Type: Spontaneous
  Country: US (occurrence: US)
  Receive Date: 20201030
  Receipt Date: 20201030
  Transmission Date: 20210114
  Serious: Yes (Life-Threatening, Hospitalization)
  Sender: FDA-Public Use
  Company Number: US-MYLANLABS-2020M1090720

PATIENT
  Age: 34 Year
  Sex: Male

DRUGS (1)
  1. NALOXONE [Suspect]
     Active Substance: NALOXONE
     Indication: UNRESPONSIVE TO STIMULI
     Route: 065

REACTIONS (1)
  - Drug ineffective [Unknown]
